FAERS Safety Report 16510981 (Version 1)
Quarter: 2019Q3

REPORT INFORMATION
  Report Type: Report from Study
  Country: US (occurrence: US)
  Receive Date: 20190702
  Receipt Date: 20190702
  Transmission Date: 20191004
  Serious: Yes (Other)
  Sender: FDA-Public Use
  Company Number: US-ROCHE-2163564

PATIENT
  Age: 67 Year
  Sex: Female

DRUGS (4)
  1. RITUXAN [Suspect]
     Active Substance: RITUXIMAB
     Indication: OFF LABEL USE
  2. OCREVUS [Suspect]
     Active Substance: OCRELIZUMAB
     Indication: RELAPSING MULTIPLE SCLEROSIS
     Route: 042
     Dates: start: 20180716
  3. OCREVUS [Suspect]
     Active Substance: OCRELIZUMAB
     Indication: OFF LABEL USE
  4. RITUXAN [Suspect]
     Active Substance: RITUXIMAB
     Indication: PRODUCT USED FOR UNKNOWN INDICATION
     Route: 042

REACTIONS (13)
  - Skin cancer [Unknown]
  - Excessive cerumen production [Recovered/Resolved]
  - Hemiparesis [Not Recovered/Not Resolved]
  - Memory impairment [Unknown]
  - Flushing [Not Recovered/Not Resolved]
  - Intentional product use issue [Unknown]
  - Infection [Unknown]
  - Lower limb fracture [Unknown]
  - Dysphonia [Unknown]
  - Headache [Recovered/Resolved]
  - Off label use [Unknown]
  - Increased tendency to bruise [Unknown]
  - Ear discomfort [Recovered/Resolved]

NARRATIVE: CASE EVENT DATE: 20180717
